FAERS Safety Report 11793995 (Version 1)
Quarter: 2015Q4

REPORT INFORMATION
  Report Type: Spontaneous
  Country: US (occurrence: None)
  Receive Date: 20151201
  Receipt Date: 20151201
  Transmission Date: 20160305
  Serious: Yes (Hospitalization)
  Sender: FDA-Public Use
  Company Number: None

PATIENT
  Age: 63 Year
  Sex: Male
  Weight: 104.33 kg

DRUGS (9)
  1. ALLOPURINOL. [Concomitant]
     Active Substance: ALLOPURINOL
  2. FUROSEMIDE. [Concomitant]
     Active Substance: FUROSEMIDE
  3. OMEGA 3 (FISH OIL) [Concomitant]
     Active Substance: OMEGA-3 FATTY ACIDS
  4. PRALUENT [Suspect]
     Active Substance: ALIROCUMAB
     Indication: LIVER FUNCTION TEST ABNORMAL
     Route: 042
     Dates: start: 20151010, end: 20151113
  5. CLOPIDOGREL [Concomitant]
     Active Substance: CLOPIDOGREL BISULFATE
  6. ASPIRIN. [Concomitant]
     Active Substance: ASPIRIN
  7. HYDROCORTISIM [Concomitant]
  8. PRALUENT [Suspect]
     Active Substance: ALIROCUMAB
     Indication: HIGH DENSITY LIPOPROTEIN
     Route: 042
     Dates: start: 20151010, end: 20151113
  9. METOPROLOL [Concomitant]
     Active Substance: METOPROLOL

REACTIONS (4)
  - Influenza like illness [None]
  - Adverse drug reaction [None]
  - Blood pressure decreased [None]
  - Rash [None]

NARRATIVE: CASE EVENT DATE: 20151020
